FAERS Safety Report 7331385-4 (Version None)
Quarter: 2011Q1

REPORT INFORMATION
  Report Type: 
  Country: None (occurrence: None)
  Receive Date: 20110304
  Receipt Date: 20110225
  Transmission Date: 20110831
  Serious: Yes (Life-Threatening, Hospitalization)
  Sender: FDA-Public Use
  Company Number: FR-PFIZER INC-2009240377

PATIENT
  Age: 25 Year
  Sex: Male

DRUGS (22)
  1. AMBISOME [Interacting]
     Dosage: UNK
     Route: 042
     Dates: start: 20090101
  2. ACUPAN [Concomitant]
     Indication: PAIN
     Dosage: UNK
     Dates: start: 20090509, end: 20090527
  3. TRIFLUCAN [Suspect]
     Dosage: 400 MG, 2X/DAY
     Route: 042
     Dates: start: 20090514, end: 20090602
  4. AMBISOME [Interacting]
     Dosage: 180 MG, 1X/DAY
     Route: 042
     Dates: start: 20090519, end: 20090528
  5. DAFALGAN [Concomitant]
     Dosage: 500 MG, 4X/DAY
     Route: 048
     Dates: start: 20090429
  6. DIFFU K [Concomitant]
     Dosage: UNK
     Route: 048
     Dates: start: 20090503, end: 20090524
  7. BI-PROFENID [Concomitant]
     Dosage: 150 MG, 2X/DAY
     Dates: start: 20090509, end: 20090517
  8. LASIX [Concomitant]
     Dosage: UNK
     Route: 048
     Dates: start: 20090503
  9. ANCOTIL [Concomitant]
     Dosage: UNK
     Dates: start: 20090422, end: 20090509
  10. ANCOTIL [Concomitant]
     Dosage: UNK
     Dates: start: 20090602
  11. AMBISOME [Interacting]
     Dosage: 120 MG, 1X/DAY
     Route: 042
     Dates: start: 20090422, end: 20090509
  12. SUBUTEX [Concomitant]
     Dosage: 0.4 MG, 2X/DAY
     Route: 048
  13. HEPARIN [Concomitant]
     Dosage: 0.4 ML, 2X/DAY
     Route: 042
     Dates: start: 20090429
  14. NEXIUM [Concomitant]
     Dosage: 200 MG, 1X/DAY
     Route: 048
     Dates: start: 20090429
  15. ALDACTONE [Concomitant]
     Dosage: 25 MG, 1X/DAY
     Route: 048
     Dates: start: 20090430
  16. DIFFU K [Concomitant]
     Dosage: UNK
     Route: 048
     Dates: start: 20090530
  17. CORDARONE [Interacting]
     Dosage: 400 MG, 1X/DAY
     Route: 048
     Dates: start: 20090507, end: 20090602
  18. CARDENSIEL [Interacting]
     Dosage: 7500 UG, 1X/DAY
     Route: 048
     Dates: start: 20090515, end: 20090602
  19. COLCHIMAX [Concomitant]
     Dosage: 1 DF, 1X/DAY
     Dates: start: 20090430, end: 20090518
  20. NICOTINE [Concomitant]
     Dosage: 1 DF, 1X/DAY IN THE EVENING
     Route: 062
  21. TARDYFERON [Concomitant]
     Dosage: 80 MG, 2X/DAY
     Route: 048
     Dates: start: 20090429
  22. ALPRAZOLAM [Concomitant]
     Dosage: 0.5 MG, 3X/DAY
     Route: 048
     Dates: start: 20090430

REACTIONS (5)
  - HYPOKALAEMIA [None]
  - TORSADE DE POINTES [None]
  - CARDIO-RESPIRATORY ARREST [None]
  - DRUG INTERACTION [None]
  - MYOCLONIC EPILEPSY [None]
